FAERS Safety Report 14861047 (Version 1)
Quarter: 2018Q2

REPORT INFORMATION
  Report Type: Spontaneous
  Country: US (occurrence: US)
  Receive Date: 20180508
  Receipt Date: 20180508
  Transmission Date: 20180711
  Serious: Yes (Other)
  Sender: FDA-Public Use
  Company Number: US-ASTRAZENECA-2018SE60318

PATIENT
  Age: 30 Year
  Sex: Female
  Weight: 83.9 kg

DRUGS (11)
  1. BENDARYL [Concomitant]
     Indication: PROPHYLAXIS
     Route: 042
     Dates: start: 20180423
  2. IBUPROFEN. [Concomitant]
     Active Substance: IBUPROFEN
  3. ATIVAN [Concomitant]
     Active Substance: LORAZEPAM
     Indication: PROPHYLAXIS
  4. DEXAMETHASONE. [Concomitant]
     Active Substance: DEXAMETHASONE
     Indication: PROPHYLAXIS
  5. SYNTHROID [Concomitant]
     Active Substance: LEVOTHYROXINE SODIUM
     Indication: HYPOTHYROIDISM
  6. PANTOPRAZOLE [Concomitant]
     Active Substance: PANTOPRAZOLE
  7. NEXIUM [Suspect]
     Active Substance: ESOMEPRAZOLE MAGNESIUM
     Indication: GASTROOESOPHAGEAL REFLUX DISEASE
     Route: 048
     Dates: start: 2001, end: 201802
  8. PRILOSEC [Suspect]
     Active Substance: OMEPRAZOLE MAGNESIUM
     Indication: GASTROOESOPHAGEAL REFLUX DISEASE
     Route: 048
     Dates: start: 1989, end: 2001
  9. ZANTAC [Concomitant]
     Active Substance: RANITIDINE HYDROCHLORIDE
  10. TAXOL [Concomitant]
     Active Substance: PACLITAXEL
     Indication: BREAST CANCER FEMALE
     Route: 042
     Dates: start: 20180423
  11. ESOMEPRAZOLE [Suspect]
     Active Substance: ESOMEPRAZOLE
     Indication: GASTROOESOPHAGEAL REFLUX DISEASE
     Route: 048
     Dates: start: 201802

REACTIONS (7)
  - Flushing [Not Recovered/Not Resolved]
  - Hiatus hernia [Not Recovered/Not Resolved]
  - Off label use [Unknown]
  - Breast cancer female [Not Recovered/Not Resolved]
  - Incorrect drug administration duration [Unknown]
  - Hypothyroidism [Not Recovered/Not Resolved]
  - Dysmenorrhoea [Unknown]

NARRATIVE: CASE EVENT DATE: 1989
